FAERS Safety Report 17166566 (Version 3)
Quarter: 2020Q1

REPORT INFORMATION
  Report Type: Spontaneous
  Country: IT (occurrence: IT)
  Receive Date: 20191217
  Receipt Date: 20200119
  Transmission Date: 20200409
  Serious: Yes (Hospitalization)
  Sender: FDA-Public Use
  Company Number: IT-NOVOPROD-701634

PATIENT
  Sex: Female
  Weight: 65 kg

DRUGS (1)
  1. NOVORAPID [Suspect]
     Active Substance: INSULIN ASPART
     Indication: TYPE 2 DIABETES MELLITUS
     Dosage: UNK
     Route: 058

REACTIONS (6)
  - Anaemia [Unknown]
  - Diabetic ketoacidosis [Recovered/Resolved]
  - Fatigue [Unknown]
  - Infusion site bruising [Unknown]
  - Limb discomfort [Unknown]
  - Infusion site abscess [Unknown]

NARRATIVE: CASE EVENT DATE: 20190815
